FAERS Safety Report 6687189-9 (Version None)
Quarter: 2010Q2

REPORT INFORMATION
  Report Type: 
  Country: None (occurrence: None)
  Receive Date: 20100419
  Receipt Date: 20100407
  Transmission Date: 20101027
  Serious: Yes (Other)
  Sender: FDA-Public Use
  Company Number: GB-PFIZER INC-2010043816

PATIENT

DRUGS (2)
  1. PREGABALIN [Suspect]
     Dosage: 50 MG, 1X/DAY
  2. PREGABALIN [Suspect]
     Dosage: 50 MG, 3X/DAY

REACTIONS (2)
  - BLOOD CREATINE PHOSPHOKINASE INCREASED [None]
  - NEUROLEPTIC MALIGNANT SYNDROME [None]
